FAERS Safety Report 4416728-3 (Version None)
Quarter: 2004Q3

REPORT INFORMATION
  Report Type: 
  Country: None (occurrence: None)
  Receive Date: 20040802
  Receipt Date: 20040714
  Transmission Date: 20050211
  Serious: Yes (Hospitalization)
  Sender: FDA-Public Use
  Company Number: WAES 0407USA01637

PATIENT
  Age: 56 Year
  Sex: Female

DRUGS (5)
  1. COZAAR [Suspect]
     Indication: HYPERTENSION
     Dosage: 50 MG/DAILY
     Route: 048
     Dates: start: 20000728, end: 20010201
  2. BLOPRESS [Concomitant]
  3. LIPITOR [Concomitant]
  4. LONGES [Concomitant]
  5. MUCOSTA [Concomitant]

REACTIONS (2)
  - ANGINA PECTORIS [None]
  - TRANSIENT ISCHAEMIC ATTACK [None]
